FAERS Safety Report 9326351 (Version 2)
Quarter: 2013Q3

REPORT INFORMATION
  Report Type: Report from Study
  Country: SE (occurrence: SE)
  Receive Date: 20130604
  Receipt Date: 20130817
  Transmission Date: 20140515
  Serious: No
  Sender: FDA-Public Use
  Company Number: SE-ROCHE-1228050

PATIENT
  Age: 61 Year
  Sex: Female
  Weight: 65.5 kg

DRUGS (1)
  1. TRASTUZUMAB EMTANSINE [Suspect]
     Indication: BREAST CANCER
     Route: 042

REACTIONS (1)
  - Aspartate aminotransferase increased [Not Recovered/Not Resolved]
